FAERS Safety Report 9861446 (Version 1)
Quarter: 2014Q1

REPORT INFORMATION
  Report Type: Spontaneous
  Country: FR (occurrence: FR)
  Receive Date: 20140203
  Receipt Date: 20140203
  Transmission Date: 20141002
  Serious: Yes (Hospitalization)
  Sender: FDA-Public Use
  Company Number: FR-ROCHE-1339189

PATIENT
  Age: 79 Year
  Sex: Male

DRUGS (10)
  1. BACTRIM FORTE [Suspect]
     Indication: PRODUCT USED FOR UNKNOWN INDICATION
     Route: 048
     Dates: start: 20130920, end: 20131007
  2. MABTHERA [Suspect]
     Indication: PRODUCT USED FOR UNKNOWN INDICATION
     Route: 042
     Dates: start: 20130927, end: 20130927
  3. INEXIUM [Suspect]
     Indication: PRODUCT USED FOR UNKNOWN INDICATION
     Route: 048
     Dates: end: 20131007
  4. TAHOR [Suspect]
     Indication: PRODUCT USED FOR UNKNOWN INDICATION
     Route: 048
     Dates: end: 20131007
  5. PRADAXA [Suspect]
     Indication: PRODUCT USED FOR UNKNOWN INDICATION
     Route: 048
     Dates: end: 20131004
  6. KARDEGIC [Concomitant]
     Route: 065
  7. CACIT D3 [Concomitant]
  8. INIPOMP [Concomitant]
     Route: 065
  9. LOVENOX [Concomitant]
     Route: 065
     Dates: start: 20131005
  10. CAPECITABINE [Concomitant]
     Route: 065
     Dates: end: 20131005

REACTIONS (1)
  - Hepatitis cholestatic [Not Recovered/Not Resolved]
